FAERS Safety Report 8046584-6 (Version None)
Quarter: 2012Q1

REPORT INFORMATION
  Report Type: 
  Country: None (occurrence: None)
  Receive Date: 20120113
  Receipt Date: 20120109
  Transmission Date: 20120608
  Serious: Yes (Life-Threatening, Hospitalization)
  Sender: FDA-Public Use
  Company Number: ZW-B.I. PHARMACEUTICALS,INC./RIDGEFIELD-2011-BP-14938BP

PATIENT
  Sex: Female
  Weight: 63.5 kg

DRUGS (9)
  1. LAMIVUDINE [Suspect]
     Dosage: 300 MG
     Route: 048
     Dates: start: 20110627
  2. METFORMIN HCL [Suspect]
     Indication: TYPE 2 DIABETES MELLITUS
     Route: 048
     Dates: start: 20110201, end: 20110510
  3. VIRAMUNE [Suspect]
     Indication: HIV INFECTION
     Dosage: 400 MG
     Route: 048
     Dates: start: 20090917, end: 20110510
  4. VIRAMUNE [Suspect]
     Dosage: 400 MG
     Route: 048
     Dates: start: 20110627
  5. STAVUDINE [Suspect]
     Indication: HIV INFECTION
     Dosage: 60 MG
     Route: 048
     Dates: start: 20090909, end: 20110510
  6. COTRIM [Concomitant]
     Indication: PROPHYLAXIS
     Route: 048
     Dates: end: 20110703
  7. TDF [Concomitant]
     Indication: HIV INFECTION
     Dosage: 300 MG
     Route: 048
     Dates: start: 20110628
  8. ALBUTEROL SULFATE AUTOHALER [Concomitant]
     Indication: ASTHMA
     Route: 048
     Dates: end: 20110510
  9. LAMIVUDINE [Suspect]
     Indication: HIV INFECTION
     Dosage: 300 MG
     Route: 048
     Dates: start: 20090917, end: 20110510

REACTIONS (7)
  - DIABETIC KETOACIDOSIS [None]
  - DIABETES MELLITUS INADEQUATE CONTROL [None]
  - HYPERGLYCAEMIA [None]
  - LACTIC ACIDOSIS [None]
  - PNEUMONIA [None]
  - ABDOMINAL PAIN [None]
  - DEHYDRATION [None]
